FAERS Safety Report 4758481-X (Version None)
Quarter: 2005Q3

REPORT INFORMATION
  Report Type: 
  Country: None (occurrence: None)
  Receive Date: 20050826
  Receipt Date: 20050816
  Transmission Date: 20060218
  Serious: Yes (Life-Threatening, Hospitalization, Disabling)
  Sender: FDA-Public Use
  Company Number: 2005115888

PATIENT
  Age: 52 Year
  Sex: Female
  Weight: 125 kg

DRUGS (3)
  1. GENOTROPIN [Suspect]
     Indication: HYPOPITUITARISM
     Dosage: 0.1 MG (16 I.U., 1 IN 1 D),
     Dates: end: 20040302
  2. SERTRALINE HCL [Concomitant]
  3. OMEPRAZOLE [Concomitant]

REACTIONS (8)
  - APPETITE DISORDER [None]
  - BLINDNESS [None]
  - CRANIOPHARYNGIOMA [None]
  - DISEASE RECURRENCE [None]
  - HEADACHE [None]
  - HYPOTHALAMO-PITUITARY DISORDERS [None]
  - LETHARGY [None]
  - THIRST [None]
